FAERS Safety Report 8588024-4 (Version None)
Quarter: 2012Q3

REPORT INFORMATION
  Report Type: 
  Country: None (occurrence: None)
  Receive Date: 20120731
  Receipt Date: 20120716
  Transmission Date: 20120928
  Serious: Yes (Hospitalization)
  Sender: FDA-Public Use
  Company Number: IMP_05937_2012

PATIENT
  Age: 9 Year
  Sex: Male

DRUGS (4)
  1. BACLOFEN [Concomitant]
  2. CARBIDOPA + LEVODOPA [Suspect]
     Indication: DYSTONIA
     Dosage: SEE IMAGE
  3. CLONAZEPAM [Concomitant]
  4. TRIHEXYPHENIDYL HCL [Concomitant]

REACTIONS (3)
  - RESPIRATORY DISTRESS [None]
  - ILEUS [None]
  - NEUROLEPTIC MALIGNANT SYNDROME [None]
